FAERS Safety Report 17782835 (Version 1)
Quarter: 2020Q2

REPORT INFORMATION
  Report Type: Spontaneous
  Country: FR (occurrence: FR)
  Receive Date: 20200513
  Receipt Date: 20200513
  Transmission Date: 20200714
  Serious: Yes (Other)
  Sender: FDA-Public Use
  Company Number: FR-EUSA PHARMA-2015-FR-000711

PATIENT

DRUGS (1)
  1. ASPARAGINASE [Suspect]
     Active Substance: ASPARAGINASE
     Indication: LYMPHOMA

REACTIONS (2)
  - Hypersensitivity [Unknown]
  - Abdominal symptom [Unknown]
